FAERS Safety Report 5130012-4 (Version None)
Quarter: 2006Q4

REPORT INFORMATION
  Report Type: 
  Country: None (occurrence: None)
  Receive Date: 20061013
  Receipt Date: 20050518
  Transmission Date: 20070319
  Serious: Yes (Death, Hospitalization)
  Sender: FDA-Public Use
  Company Number: 2005076918

PATIENT
  Sex: Male

DRUGS (12)
  1. MEDROL [Suspect]
     Indication: CHRONIC OBSTRUCTIVE PULMONARY DISEASE
  2. DIOVAN [Concomitant]
     Indication: HYPERTENSION
     Dosage: 1600 MG, ORAL
     Route: 048
     Dates: start: 20041028
  3. SERETIDE (FLUTICASONE PROPIONATE, SALMETEROL XINAFOATE) [Concomitant]
  4. THEOPHYLLINE [Concomitant]
  5. SPIRIVA (CALAMINE, CAMPHOR, DIPHENHYDRAMINE) [Concomitant]
  6. LYSOMUCIL (ACETYLCYSTEINE) [Concomitant]
  7. HYTRIN [Concomitant]
  8. D-CURE (COLECALCIFEROL) [Concomitant]
  9. CRESTOR [Concomitant]
  10. CALCIUM CARBONATE (CALCIUM CARBONATE) [Concomitant]
  11. TRAZOLAN (TRAZODONE HYDROCHLORIDE) [Concomitant]
  12. ATARAX [Concomitant]

REACTIONS (1)
  - FUNGAL INFECTION [None]
